FAERS Safety Report 24159694 (Version 5)
Quarter: 2025Q1

REPORT INFORMATION
  Report Type: Report from Study
  Country: CA (occurrence: CA)
  Receive Date: 20240731
  Receipt Date: 20250116
  Transmission Date: 20250408
  Serious: Yes (Other)
  Sender: NOVARTIS
  Company Number: CA-002147023-NVSC2024CA153827

PATIENT
  Age: 55 Year
  Sex: Female

DRUGS (5)
  1. KISQALI [Suspect]
     Active Substance: RIBOCICLIB
     Indication: Breast cancer metastatic
     Route: 048
     Dates: start: 20240628
  2. KISQALI [Suspect]
     Active Substance: RIBOCICLIB
     Dosage: 400 MG, QD (CYCLE 2)
     Route: 048
     Dates: start: 20240722
  3. KISQALI [Suspect]
     Active Substance: RIBOCICLIB
     Route: 048
  4. KISQALI [Suspect]
     Active Substance: RIBOCICLIB
     Dosage: 600 MG, QD (FOR 21 DAYS FOLLOWED BY 7 DAYS OFF)
     Route: 048
     Dates: start: 20240930
  5. KISQALI [Suspect]
     Active Substance: RIBOCICLIB
     Dosage: 400 MG, QD
     Route: 048

REACTIONS (16)
  - Crohn^s disease [Unknown]
  - Concomitant disease aggravated [Unknown]
  - Fatigue [Unknown]
  - Diarrhoea [Unknown]
  - Alopecia [Unknown]
  - Dizziness [Unknown]
  - Pain [Unknown]
  - Decreased appetite [Unknown]
  - Weight decreased [Unknown]
  - Cough [Unknown]
  - Nasal dryness [Unknown]
  - Gingival pain [Unknown]
  - Thirst [Unknown]
  - Gait inability [Unknown]
  - Skin disorder [Unknown]
  - Mouth ulceration [Unknown]
